FAERS Safety Report 18245098 (Version 2)
Quarter: 2020Q4

REPORT INFORMATION
  Report Type: Other
  Country: ES (occurrence: ES)
  Receive Date: 20200908
  Receipt Date: 20201102
  Transmission Date: 20210113
  Serious: Yes (Other)
  Sender: FDA-Public Use
  Company Number: ES-ROCHE-2671135

PATIENT

DRUGS (7)
  1. AZATHIOPRINE. [Suspect]
     Active Substance: AZATHIOPRINE
     Indication: C3 GLOMERULOPATHY
     Route: 065
  2. MYCOPHENOLATE MOFETIL. [Suspect]
     Active Substance: MYCOPHENOLATE MOFETIL
     Indication: C3 GLOMERULOPATHY
     Route: 065
  3. CYCLOPHOSPHAMIDE. [Suspect]
     Active Substance: CYCLOPHOSPHAMIDE
     Indication: C3 GLOMERULOPATHY
     Route: 065
  4. TACROLIMUS. [Suspect]
     Active Substance: TACROLIMUS
     Indication: C3 GLOMERULOPATHY
     Route: 065
  5. RITUXIMAB. [Suspect]
     Active Substance: RITUXIMAB
     Indication: C3 GLOMERULOPATHY
     Route: 065
  6. ECULIZUMAB [Suspect]
     Active Substance: ECULIZUMAB
     Indication: C3 GLOMERULOPATHY
     Route: 065
  7. CYCLOSPORINE. [Suspect]
     Active Substance: CYCLOSPORINE
     Indication: C3 GLOMERULOPATHY
     Route: 065

REACTIONS (12)
  - Cataract [Unknown]
  - Cytopenia [Unknown]
  - Herpes zoster [Unknown]
  - Cardiovascular disorder [Unknown]
  - Abdominal sepsis [Unknown]
  - Diabetes mellitus [Unknown]
  - Influenza [Unknown]
  - Cytomegalovirus infection [Unknown]
  - Osteonecrosis [Unknown]
  - Urinary tract infection [Unknown]
  - Pneumonia [Unknown]
  - Pyelonephritis [Unknown]
